FAERS Safety Report 8496357-5 (Version None)
Quarter: 2012Q2

REPORT INFORMATION
  Report Type: 
  Country: None (occurrence: None)
  Receive Date: 20120405
  Receipt Date: 20100406
  Transmission Date: 20120825
  Serious: Yes (Disabling)
  Sender: FDA-Public Use
  Company Number: PHHY2010US21645

PATIENT
  Age: 52 Year
  Sex: Female
  Weight: 155 kg

DRUGS (1)
  1. RECLAST [Suspect]
     Indication: OSTEOPOROSIS
     Dosage: 5 MG, INTRAVENOUS
     Route: 042
     Dates: start: 20100322

REACTIONS (6)
  - PAIN [None]
  - NAUSEA [None]
  - PYREXIA [None]
  - ABASIA [None]
  - OCULAR HYPERAEMIA [None]
  - VOMITING [None]
